FAERS Safety Report 7912399-X (Version None)
Quarter: 2011Q4

REPORT INFORMATION
  Report Type: 
  Country: None (occurrence: None)
  Receive Date: 20111114
  Receipt Date: 20111103
  Transmission Date: 20120403
  Serious: Yes (Hospitalization, Other)
  Sender: FDA-Public Use
  Company Number: FI-ABBOTT-11P-055-0728053-00

PATIENT
  Sex: Male

DRUGS (2)
  1. HUMIRA [Suspect]
     Indication: ARTHRITIS REACTIVE
     Route: 058
     Dates: start: 20070201, end: 20110601
  2. NALTREXONE HYDROCHLORIDE [Concomitant]
     Indication: PRODUCT USED FOR UNKNOWN INDICATION

REACTIONS (39)
  - URINE OUTPUT DECREASED [None]
  - PROTEINURIA [None]
  - ADDISON'S DISEASE [None]
  - LOCAL SWELLING [None]
  - GENERAL PHYSICAL HEALTH DETERIORATION [None]
  - HIP ARTHROPLASTY [None]
  - KNEE ARTHROPLASTY [None]
  - BLOOD ALKALINE PHOSPHATASE INCREASED [None]
  - FLUID RETENTION [None]
  - OEDEMA PERIPHERAL [None]
  - ANXIETY [None]
  - AMYLOIDOSIS [None]
  - HYPOTENSION [None]
  - ABNORMAL WEIGHT GAIN [None]
  - BLOOD CREATININE INCREASED [None]
  - CARTILAGE INJURY [None]
  - HYPONATRAEMIA [None]
  - BLOOD PRESSURE DECREASED [None]
  - CHONDROPATHY [None]
  - JOINT RANGE OF MOTION DECREASED [None]
  - DRUG INEFFECTIVE [None]
  - ORTHOSTATIC HYPERTENSION [None]
  - PULMONARY EMBOLISM [None]
  - TACHYCARDIA [None]
  - SYNCOPE [None]
  - IRITIS [None]
  - BLOOD ALBUMIN DECREASED [None]
  - ILL-DEFINED DISORDER [None]
  - FATIGUE [None]
  - PLEURAL EFFUSION [None]
  - INFECTION [None]
  - LYMPHOPENIA [None]
  - SWELLING FACE [None]
  - NEPHROTIC SYNDROME [None]
  - DECREASED APPETITE [None]
  - LOCALISED OEDEMA [None]
  - ARTHROPATHY [None]
  - DRUG EFFECT DECREASED [None]
  - C-REACTIVE PROTEIN INCREASED [None]
